FAERS Safety Report 17872555 (Version 1)
Quarter: 2020Q2

REPORT INFORMATION
  Report Type: Spontaneous
  Country: US (occurrence: US)
  Receive Date: 20200608
  Receipt Date: 20200608
  Transmission Date: 20200714
  Serious: No
  Sender: FDA-Public Use
  Company Number: US-BAYER-2020-095710

PATIENT
  Age: 19 Year
  Sex: Female

DRUGS (2)
  1. KYLEENA [Suspect]
     Active Substance: LEVONORGESTREL
     Indication: CONTRACEPTION
     Dosage: 17.5 ?G PER DAY CONTINUOUSLY
     Route: 015
     Dates: start: 201903
  2. PLAN B [Concomitant]
     Active Substance: LEVONORGESTREL

REACTIONS (2)
  - Menstruation delayed [None]
  - Device issue [None]

NARRATIVE: CASE EVENT DATE: 202004
